FAERS Safety Report 24464047 (Version 1)
Quarter: 2024Q4

REPORT INFORMATION
  Report Type: Report from Study
  Country: US (occurrence: US)
  Receive Date: 20241018
  Receipt Date: 20241018
  Transmission Date: 20250115
  Serious: No
  Sender: ROCHE
  Company Number: US-ROCHE-3425123

PATIENT
  Age: 43 Year
  Sex: Female

DRUGS (5)
  1. XOLAIR [Suspect]
     Active Substance: OMALIZUMAB
     Indication: Chronic spontaneous urticaria
     Dosage: ON 18/JUL/2023, LAST INJECTION DATE
     Route: 058
  2. XOLAIR [Suspect]
     Active Substance: OMALIZUMAB
  3. FAMOTIDINE [Concomitant]
     Active Substance: FAMOTIDINE
  4. NEXIUM [Concomitant]
     Active Substance: ESOMEPRAZOLE MAGNESIUM
  5. XYZAL [Concomitant]
     Active Substance: LEVOCETIRIZINE DIHYDROCHLORIDE

REACTIONS (16)
  - Gastrooesophageal reflux disease [Unknown]
  - Oesophageal dilatation [Unknown]
  - Sinusitis [Unknown]
  - Headache [Unknown]
  - Mastoiditis [Unknown]
  - Reflux laryngitis [Unknown]
  - Upper respiratory tract congestion [Unknown]
  - Dysphagia [Unknown]
  - Nasal discharge discolouration [Unknown]
  - Ear congestion [Unknown]
  - Throat irritation [Unknown]
  - Fatigue [Unknown]
  - Acute sinusitis [Unknown]
  - Rash [Unknown]
  - Rhinitis allergic [Unknown]
  - Asthma [Unknown]
